FAERS Safety Report 8469547-5 (Version None)
Quarter: 2012Q2

REPORT INFORMATION
  Report Type: 
  Country: None (occurrence: None)
  Receive Date: 20120323
  Receipt Date: 20111212
  Transmission Date: 20120825
  Serious: Yes (Hospitalization, Other)
  Sender: FDA-Public Use
  Company Number: 163-21880-11081910

PATIENT
  Age: 62 Year
  Sex: Male
  Weight: 117.9352 kg

DRUGS (3)
  1. REVLIMID [Suspect]
     Indication: MULTIPLE MYELOMA
     Dosage: 10 MG, DAILY FOR 21 DAYS, THEN 7 DAYS OFF, PO  : 10 MG, EVERY OTHER DAY, PO
     Route: 048
     Dates: start: 20110715, end: 20110812
  2. REVLIMID [Suspect]
     Indication: MULTIPLE MYELOMA
     Dosage: 10 MG, DAILY FOR 21 DAYS, THEN 7 DAYS OFF, PO  : 10 MG, EVERY OTHER DAY, PO
     Route: 048
     Dates: start: 20080808, end: 20090420
  3. CATAPRES [Concomitant]

REACTIONS (8)
  - RENAL DISORDER [None]
  - DYSPNOEA [None]
  - ASTHENIA [None]
  - FATIGUE [None]
  - DIARRHOEA [None]
  - OEDEMA [None]
  - CARDIAC FAILURE CONGESTIVE [None]
  - BLOOD COUNT ABNORMAL [None]
